FAERS Safety Report 21443063 (Version 2)
Quarter: 2022Q4

REPORT INFORMATION
  Report Type: Report from Study
  Country: CA (occurrence: CA)
  Receive Date: 20221012
  Receipt Date: 20221101
  Transmission Date: 20230112
  Serious: Yes (Other)
  Sender: FDA-Public Use
  Company Number: CA-JNJFOC-20221004006

PATIENT
  Age: 56 Year
  Sex: Female

DRUGS (1)
  1. REMICADE [Suspect]
     Active Substance: INFLIXIMAB
     Indication: Colitis ulcerative
     Route: 042
     Dates: start: 20210629

REACTIONS (11)
  - Lupus-like syndrome [Unknown]
  - Syncope [Unknown]
  - Defaecation urgency [Unknown]
  - Reflexes abnormal [Unknown]
  - Central pain syndrome [Unknown]
  - Fibromyalgia [Unknown]
  - Chronic fatigue syndrome [Unknown]
  - Gastrointestinal inflammation [Unknown]
  - Tachycardia [Unknown]
  - Hypertension [Unknown]
  - Palpitations [Unknown]

NARRATIVE: CASE EVENT DATE: 20220825
